FAERS Safety Report 4527885-2 (Version None)
Quarter: 2004Q4

REPORT INFORMATION
  Report Type: 
  Country: None (occurrence: None)
  Receive Date: 20041123
  Receipt Date: 20031013
  Transmission Date: 20050328
  Serious: Yes (Life-Threatening, Hospitalization, Disabling)
  Sender: FDA-Public Use
  Company Number: HQWYE191813OCT03

PATIENT
  Age: 67 Year
  Sex: Male
  Weight: 81.72 kg

DRUGS (7)
  1. ZOSYN [Suspect]
     Indication: INFECTED SKIN ULCER
     Dosage: 3.375 G 1X PE 6 HR, INTRAVENOUS
     Route: 042
     Dates: start: 20030908, end: 20030920
  2. GLIPIZIDE [Concomitant]
  3. LASIX [Concomitant]
  4. ACIPHEX [Concomitant]
  5. EPOETIN ALFA (EPOETIN ALFA) [Concomitant]
  6. METOPROLOL TARTRATE [Concomitant]
  7. INSULIN [Concomitant]

REACTIONS (3)
  - EOSINOPHILIA [None]
  - NEPHRITIS INTERSTITIAL [None]
  - RENAL FAILURE [None]
